FAERS Safety Report 19451201 (Version 1)
Quarter: 2021Q2

REPORT INFORMATION
  Report Type: Spontaneous
  Country: US (occurrence: US)
  Receive Date: 20210622
  Receipt Date: 20210622
  Transmission Date: 20210717
  Serious: Yes (Hospitalization)
  Sender: FDA-Public Use
  Company Number: None

PATIENT
  Age: 38 Year
  Sex: Female
  Weight: 99 kg

DRUGS (2)
  1. HYPERTENSION MEDICATION (UNK) [Concomitant]
  2. VIVITROL [Suspect]
     Active Substance: NALTREXONE
     Indication: DRUG DEPENDENCE
     Dosage: ?          OTHER FREQUENCY:EVERY 28 DAYS;?
     Route: 030
     Dates: start: 20210609, end: 20210609

REACTIONS (3)
  - Vomiting [None]
  - Refusal of treatment by patient [None]
  - Nausea [None]

NARRATIVE: CASE EVENT DATE: 20210612
